FAERS Safety Report 5331422-2 (Version None)
Quarter: 2007Q2

REPORT INFORMATION
  Report Type: 
  Country: None (occurrence: None)
  Receive Date: 20070516
  Receipt Date: 20070509
  Transmission Date: 20071010
  Serious: Yes (Hospitalization)
  Sender: FDA-Public Use
  Company Number: US020085

PATIENT
  Age: 61 Year
  Sex: Female
  Weight: 83.9 kg

DRUGS (11)
  1. TRISENOX [Suspect]
     Indication: MULTIPLE MYELOMA
     Dosage: 21 MG DAILY FOR 7 DAYS INTRAVENOUS DRIP
     Route: 041
     Dates: start: 20070314, end: 20070320
  2. VELCADE [Concomitant]
  3. ASCORBIC ACID [Concomitant]
  4. MELPHALAN [Concomitant]
  5. SERTRALINE HCL [Concomitant]
  6. METOPROLOL SUCCINATE EXTENDED RELEASE [Concomitant]
  7. HYDROCHLOROTHIAZIDE [Concomitant]
  8. OXYCODONE HCL [Concomitant]
  9. LORAZEPAM [Concomitant]
  10. SENNOSIDES-DOCUSATE SODIUM [Concomitant]
  11. FONDAPARINUX SODIUM [Concomitant]

REACTIONS (1)
  - PULMONARY EMBOLISM [None]
